FAERS Safety Report 8347224-9 (Version None)
Quarter: 2012Q2

REPORT INFORMATION
  Report Type: 
  Country: None (occurrence: None)
  Receive Date: 20120509
  Receipt Date: 20120503
  Transmission Date: 20120825
  Serious: Yes (Hospitalization, Other)
  Sender: FDA-Public Use
  Company Number: US-ABBOTT-12P-163-0932473-00

PATIENT
  Sex: Female
  Weight: 53.118 kg

DRUGS (2)
  1. HUMIRA [Suspect]
     Dates: end: 20120101
  2. HUMIRA [Suspect]
     Indication: CROHN'S DISEASE

REACTIONS (14)
  - JOINT SWELLING [None]
  - PALPITATIONS [None]
  - ARTHRALGIA [None]
  - THROAT IRRITATION [None]
  - ORTHOSTATIC HYPOTENSION [None]
  - PARAESTHESIA [None]
  - HAEMATOCHEZIA [None]
  - LOSS OF CONSCIOUSNESS [None]
  - DYSPEPSIA [None]
  - ARTHRITIS [None]
  - ASTHMA [None]
  - PHARYNGEAL ABSCESS [None]
  - TACHYCARDIA [None]
  - JOINT WARMTH [None]
